FAERS Safety Report 9300099 (Version 1)
Quarter: 2013Q2

REPORT INFORMATION
  Report Type: Spontaneous
  Country: US (occurrence: US)
  Receive Date: 20130521
  Receipt Date: 20130521
  Transmission Date: 20140414
  Serious: No
  Sender: FDA-Public Use
  Company Number: US-MYLANLABS-2012S1011339

PATIENT
  Age: 33 Year
  Sex: Female

DRUGS (3)
  1. AMITRIPTYLINE HYDROCHLORIDE TABLETS, USP [Suspect]
     Indication: MIGRAINE
     Route: 048
     Dates: start: 201201
  2. AMITRIPTYLINE HYDROCHLORIDE TABLETS, USP [Suspect]
     Indication: OFF LABEL USE
     Route: 048
     Dates: start: 201201
  3. DICYCLOMINE [Concomitant]
     Indication: IRRITABLE BOWEL SYNDROME

REACTIONS (1)
  - Blood thyroid stimulating hormone increased [Not Recovered/Not Resolved]
